FAERS Safety Report 8917930 (Version 2)
Quarter: 2012Q4

REPORT INFORMATION
  Report Type: 
  Country: ES (occurrence: ES)
  Receive Date: 20121120
  Receipt Date: 20121128
  Transmission Date: 20130627
  Serious: Yes (Hospitalization, Other)
  Sender: FDA-Public Use
  Company Number: ES-ABBOTT-12P-144-1007218-00

PATIENT
  Age: 51 Year
  Sex: Female

DRUGS (6)
  1. NORVIR [Suspect]
     Indication: HIV INFECTION
     Route: 048
     Dates: start: 20120725, end: 20120804
  2. CELSENTRI [Suspect]
     Indication: HIV INFECTION
     Route: 048
     Dates: start: 20120725, end: 20120804
  3. INTELENCE [Suspect]
     Indication: HIV INFECTION
     Route: 048
     Dates: start: 20120725, end: 20120804
  4. PREZISTA [Suspect]
     Indication: HIV INFECTION
     Route: 048
     Dates: start: 20120725, end: 20120804
  5. VALCYTE [Suspect]
     Indication: OPPORTUNISTIC INFECTION PROPHYLAXIS
     Route: 048
     Dates: start: 20120613, end: 20120806
  6. CO-TRIMOXAZOLE [Suspect]
     Indication: OPPORTUNISTIC INFECTION PROPHYLAXIS
     Route: 048
     Dates: start: 20120613, end: 20120806

REACTIONS (2)
  - Hepatitis cholestatic [Recovering/Resolving]
  - Oesophageal candidiasis [Unknown]
